FAERS Safety Report 24052280 (Version 1)
Quarter: 2024Q3

REPORT INFORMATION
  Report Type: Report from Study
  Country: US (occurrence: US)
  Receive Date: 20240704
  Receipt Date: 20240704
  Transmission Date: 20241017
  Serious: No
  Sender: SANDOZ
  Company Number: US-SANDOZ-SDZ2024US062786

PATIENT
  Age: 59 Year

DRUGS (1)
  1. HYRIMOZ [Suspect]
     Active Substance: ADALIMUMAB-ADAZ
     Indication: Product used for unknown indication
     Dosage: UNK
     Route: 058

REACTIONS (3)
  - Product dose omission issue [Unknown]
  - Wrong technique in product usage process [Unknown]
  - Device malfunction [Unknown]

NARRATIVE: CASE EVENT DATE: 20240702
